FAERS Safety Report 18310579 (Version 1)
Quarter: 2020Q3

REPORT INFORMATION
  Report Type: Spontaneous
  Country: US (occurrence: US)
  Receive Date: 20200925
  Receipt Date: 20200925
  Transmission Date: 20201103
  Serious: No
  Sender: FDA-Public Use
  Company Number: US-SA-2020SA260528

PATIENT

DRUGS (1)
  1. AMBIEN [Suspect]
     Active Substance: ZOLPIDEM TARTRATE
     Indication: SLEEP DEFICIT
     Dosage: 0.5 MG, QD,AT NIGHT
     Route: 065

REACTIONS (2)
  - Drug ineffective [Unknown]
  - Sleep disorder [Not Recovered/Not Resolved]
